FAERS Safety Report 6186006-3 (Version None)
Quarter: 2009Q2

REPORT INFORMATION
  Report Type: 
  Country: None (occurrence: None)
  Receive Date: 20090511
  Receipt Date: 20090507
  Transmission Date: 20091009
  Serious: Yes (Hospitalization)
  Sender: FDA-Public Use
  Company Number: DE-ABBOTT-09P-062-0572079-00

PATIENT
  Age: 57 Year
  Sex: Male
  Weight: 71 kg

DRUGS (3)
  1. HUMIRA [Suspect]
     Indication: ANKYLOSING SPONDYLITIS
     Route: 058
     Dates: end: 20080801
  2. HUMIRA [Suspect]
     Route: 058
     Dates: start: 20081001
  3. DICLOFENAC [Concomitant]
     Indication: PAIN

REACTIONS (1)
  - MUSCLE RUPTURE [None]
